FAERS Safety Report 18287795 (Version 1)
Quarter: 2020Q3

REPORT INFORMATION
  Report Type: Spontaneous
  Country: US (occurrence: US)
  Receive Date: 20200918
  Receipt Date: 20200918
  Transmission Date: 20201103
  Serious: Yes (Death, Hospitalization, Other)
  Sender: FDA-Public Use
  Company Number: None

PATIENT
  Age: 58 Year
  Sex: Female

DRUGS (2)
  1. ZOSYN IN GALAXY CONTAINERS [Suspect]
     Active Substance: PIPERACILLIN SODIUM\TAZOBACTAM SODIUM
     Indication: SEPSIS
     Route: 041
     Dates: start: 20200830, end: 20200830
  2. VANCOMYCIN [Concomitant]
     Active Substance: VANCOMYCIN
     Dates: start: 20200830, end: 20200830

REACTIONS (7)
  - Angioedema [None]
  - Multiple organ dysfunction syndrome [None]
  - Anaphylactic reaction [None]
  - Bradycardia [None]
  - Rash [None]
  - Pulse absent [None]
  - Shock [None]

NARRATIVE: CASE EVENT DATE: 20200830
